FAERS Safety Report 5016001-9 (Version None)
Quarter: 2006Q2

REPORT INFORMATION
  Report Type: 
  Country: None (occurrence: None)
  Receive Date: 20060414
  Receipt Date: 20060309
  Transmission Date: 20061013
  Serious: No
  Sender: FDA-Public Use
  Company Number: 2006SP001157

PATIENT
  Age: 37 Year
  Sex: Female

DRUGS (5)
  1. LUNESTA [Suspect]
     Dosage: SEE IMAGE
     Route: 048
     Dates: start: 20060307, end: 20060307
  2. LUNESTA [Suspect]
     Dosage: SEE IMAGE
     Route: 048
     Dates: start: 20060308
  3. KLONOPIN [Suspect]
     Dosage: SEE IMAGE
     Route: 048
     Dates: start: 20060101, end: 20060101
  4. KLONOPIN [Suspect]
     Dosage: SEE IMAGE
     Route: 048
     Dates: start: 20060308
  5. ZOLOFT [Concomitant]

REACTIONS (4)
  - ACCIDENTAL OVERDOSE [None]
  - DIZZINESS [None]
  - DYSPEPSIA [None]
  - SOMNOLENCE [None]
